FAERS Safety Report 15604491 (Version 2)
Quarter: 2018Q4

REPORT INFORMATION
  Report Type: Spontaneous
  Country: CA (occurrence: CA)
  Receive Date: 20181110
  Receipt Date: 20181116
  Transmission Date: 20190205
  Serious: Yes (Death)
  Sender: FDA-Public Use
  Company Number: PHHY2018CA151363

PATIENT
  Age: 66 Year
  Sex: Male

DRUGS (1)
  1. HALOPERIDOL INJ USP [Suspect]
     Active Substance: HALOPERIDOL
     Indication: PRODUCT USED FOR UNKNOWN INDICATION
     Dosage: UNK UNK, ONCE/SINGLE
     Route: 042
     Dates: start: 20180118

REACTIONS (4)
  - Cardiac arrest [Fatal]
  - Pulseless electrical activity [Fatal]
  - Ventricular fibrillation [Fatal]
  - Ventricular tachycardia [Fatal]

NARRATIVE: CASE EVENT DATE: 20180118
